FAERS Safety Report 24998603 (Version 3)
Quarter: 2025Q4

REPORT INFORMATION
  Report Type: Spontaneous
  Country: US (occurrence: US)
  Receive Date: 20250222
  Receipt Date: 20251007
  Transmission Date: 20260118
  Serious: No
  Sender: SANOFI AVENTIS
  Company Number: US-SA-2025SA049127

PATIENT
  Age: 38 Year
  Sex: Female
  Weight: 65.8 kg

DRUGS (5)
  1. CEREZYME [Suspect]
     Active Substance: IMIGLUCERASE
     Indication: Gaucher^s disease type I
     Dosage: 3600(UNITS NOT PROVIDED) TOTAL DOSE ADMINISTERED, QOW
     Route: 041
     Dates: start: 202211
  2. CETIRIZINE HYDROCHLORIDE [Concomitant]
     Active Substance: CETIRIZINE HYDROCHLORIDE
     Indication: Premedication
     Dosage: 10 MG
     Route: 048
  3. LIDOCAINE [Concomitant]
     Active Substance: LIDOCAINE
  4. FAMOTIDINE [Concomitant]
     Active Substance: FAMOTIDINE
     Dosage: 40 MG QD PRN
  5. FLUTICASONE [Concomitant]
     Active Substance: FLUTICASONE
     Dosage: PRN

REACTIONS (1)
  - Maternal exposure during pregnancy [Unknown]

NARRATIVE: CASE EVENT DATE: 20241210
